FAERS Safety Report 21366445 (Version 1)
Quarter: 2022Q3

REPORT INFORMATION
  Report Type: Spontaneous
  Country: FR (occurrence: FR)
  Receive Date: 20220923
  Receipt Date: 20220923
  Transmission Date: 20221027
  Serious: Yes (Other)
  Sender: FDA-Public Use
  Company Number: FR-SUN PHARMACEUTICAL INDUSTRIES LTD-2022R1-355765

PATIENT
  Sex: Male

DRUGS (1)
  1. ABIRATERONE [Suspect]
     Active Substance: ABIRATERONE
     Indication: Liver disorder
     Dosage: 1000 MILLIGRAM, DAILY
     Route: 048

REACTIONS (2)
  - Hepatotoxicity [Unknown]
  - Hyperbilirubinaemia [Unknown]
